FAERS Safety Report 4394466-3 (Version None)
Quarter: 2004Q3

REPORT INFORMATION
  Report Type: 
  Country: None (occurrence: None)
  Receive Date: 20040709
  Receipt Date: 20040709
  Transmission Date: 20050211
  Serious: No
  Sender: FDA-Public Use
  Company Number: None

PATIENT
  Age: 33 Year
  Sex: Female
  Weight: 63.5036 kg

DRUGS (10)
  1. DEPAKOTE ER [Suspect]
     Indication: AFFECTIVE DISORDER
     Dosage: 2000 MG BEDTIME BUCCAL
     Route: 002
     Dates: start: 20040422, end: 20040601
  2. VITAMIN C [Concomitant]
  3. B1 [Concomitant]
  4. B6 [Concomitant]
  5. FOLIC ACID [Concomitant]
  6. ZOLOFT [Concomitant]
  7. SEROQUELL [Concomitant]
  8. CEPHALEXIN [Concomitant]
  9. RIVASTIGMIN [Concomitant]
  10. CLONAZEPAM [Concomitant]

REACTIONS (4)
  - HAEMATOCRIT DECREASED [None]
  - HAEMOGLOBIN DECREASED [None]
  - PLATELET COUNT DECREASED [None]
  - WHITE BLOOD CELL COUNT DECREASED [None]
